FAERS Safety Report 21540144 (Version 2)
Quarter: 2022Q4

REPORT INFORMATION
  Report Type: Other
  Country: CZ (occurrence: CZ)
  Receive Date: 20221102
  Receipt Date: 20221106
  Transmission Date: 20230113
  Serious: Yes (Hospitalization)
  Sender: FDA-Public Use
  Company Number: CZ-CELLTRION HEALTHCARE HUNGARY KFT-2022CZ016964

PATIENT
  Age: 76 Year
  Sex: Female

DRUGS (1)
  1. RITUXIMAB [Suspect]
     Active Substance: RITUXIMAB
     Indication: Chronic lymphocytic leukaemia
     Route: 042
     Dates: start: 2019

REACTIONS (5)
  - Disease progression [Unknown]
  - Kidney enlargement [Unknown]
  - Lymphadenopathy [Unknown]
  - Pseudomonas infection [Unknown]
  - Splenomegaly [Unknown]
